FAERS Safety Report 10023597 (Version 2)
Quarter: 2014Q2

REPORT INFORMATION
  Report Type: Spontaneous
  Country: BE (occurrence: BE)
  Receive Date: 20140320
  Receipt Date: 20140416
  Transmission Date: 20141212
  Serious: Yes (Other)
  Sender: FDA-Public Use
  Company Number: BE-JNJFOC-20140309844

PATIENT
  Age: 64 Year
  Sex: Male

DRUGS (4)
  1. SIMPONI [Suspect]
     Indication: RHEUMATOID ARTHRITIS
     Route: 058
     Dates: start: 20121015, end: 20140110
  2. METHOTREXATE [Suspect]
     Indication: PRODUCT USED FOR UNKNOWN INDICATION
     Route: 065
  3. PREDNISOLON [Concomitant]
     Dosage: INDICATION- CORTICO-THERAPY
     Route: 048
     Dates: start: 20080919
  4. GAMBARAN [Concomitant]
     Dosage: INDICATION- NSAID
     Route: 048
     Dates: start: 20140110

REACTIONS (1)
  - Mycosis fungoides [Recovering/Resolving]
